FAERS Safety Report 9503716 (Version 2)
Quarter: 2013Q3

REPORT INFORMATION
  Report Type: Spontaneous
  Country: IT (occurrence: IT)
  Receive Date: 20130906
  Receipt Date: 20130930
  Transmission Date: 20140515
  Serious: Yes (Death)
  Sender: FDA-Public Use
  Company Number: IT-PFIZER INC-2013255465

PATIENT
  Age: 27 Year
  Sex: Female
  Weight: 70 kg

DRUGS (2)
  1. PREPIDIL [Suspect]
     Indication: LABOUR INDUCTION
     Dosage: 5 MG, SINGLE
     Route: 005
     Dates: start: 20130903, end: 20130903
  2. ALDOMET [Concomitant]
     Dosage: FROM 250 MG X 3 DAILY TO 500 MG X 3 DAILY
     Dates: start: 20130802

REACTIONS (1)
  - Anaphylactic shock [Fatal]
